FAERS Safety Report 9540760 (Version 2)
Quarter: 2013Q4

REPORT INFORMATION
  Report Type: Spontaneous
  Country: US (occurrence: US)
  Receive Date: 20130920
  Receipt Date: 20131011
  Transmission Date: 20140711
  Serious: Yes (Other)
  Sender: FDA-Public Use
  Company Number: US-ASTRAZENECA-2013SE69176

PATIENT
  Age: 51 Year
  Sex: Male
  Weight: 84.4 kg

DRUGS (11)
  1. SYMBICORT [Suspect]
     Indication: ASTHMA
     Dosage: 80/4.5 MCG, 2 PUFFS BID
     Route: 055
     Dates: start: 20130821
  2. SYMBICORT [Suspect]
     Indication: ASTHMA
     Dosage: 80/4.5 MCG, 2 PUFFS DAILY
     Route: 055
     Dates: start: 201309
  3. LAMICTAL [Concomitant]
     Indication: CONVULSION
     Route: 048
     Dates: start: 2013
  4. LAMICTAL [Concomitant]
     Indication: CONVULSION
     Route: 048
     Dates: start: 2013
  5. LAMICTAL [Concomitant]
     Indication: CONVULSION
     Route: 048
     Dates: start: 2013
  6. LAMICTAL [Concomitant]
     Indication: CONVULSION
     Route: 048
     Dates: start: 201309
  7. LAMICTAL [Concomitant]
     Indication: CONVULSION
     Route: 048
  8. ADVAIR [Concomitant]
     Dosage: 100/50
  9. PROAIR HFA [Concomitant]
     Dosage: 1-2 PUFFS EVERY 4 HOURS PRN
     Route: 055
  10. LORATADINE [Concomitant]
  11. ASTELIN [Concomitant]
     Dosage: 1 SPRAY BID
     Route: 045

REACTIONS (49)
  - Joint dislocation [Unknown]
  - Precancerous cells present [Unknown]
  - Thoracic outlet syndrome [Unknown]
  - Disorientation [Unknown]
  - Visual impairment [Unknown]
  - Vision blurred [Unknown]
  - Rhinitis [Unknown]
  - Snoring [Unknown]
  - Dysgeusia [Unknown]
  - Sluggishness [Unknown]
  - Chest discomfort [Unknown]
  - Peripheral coldness [Unknown]
  - Hypoaesthesia [Unknown]
  - Dysphagia [Unknown]
  - Dyspepsia [Unknown]
  - Bruxism [Unknown]
  - Photophobia [Unknown]
  - Osteoarthritis [Unknown]
  - Scleroderma [Unknown]
  - Livedo reticularis [Unknown]
  - Irritable bowel syndrome [Unknown]
  - Faecal incontinence [Unknown]
  - Constipation [Unknown]
  - Blood creatinine decreased [Unknown]
  - Hypoglycaemia [Unknown]
  - Fibromyalgia [Unknown]
  - Neuropathy peripheral [Unknown]
  - Pain [Unknown]
  - Cervical spinal stenosis [Unknown]
  - Magnesium deficiency [Unknown]
  - Liver disorder [Unknown]
  - Bipolar I disorder [Unknown]
  - Conjunctivitis [Unknown]
  - Vitamin B12 deficiency [Unknown]
  - Memory impairment [Unknown]
  - Waist circumference increased [Unknown]
  - Alopecia [Unknown]
  - Carpal tunnel syndrome [Unknown]
  - Dry throat [Unknown]
  - Anxiety [Unknown]
  - Lethargy [Unknown]
  - Mood altered [Unknown]
  - Pharyngitis [Unknown]
  - Urticaria [Unknown]
  - Rash macular [Unknown]
  - Dysphonia [Unknown]
  - Personality disorder [Unknown]
  - Eczema [Unknown]
  - Off label use [Unknown]
